FAERS Safety Report 9779870 (Version 2)
Quarter: 2013Q4

REPORT INFORMATION
  Report Type: Spontaneous
  Country: FR (occurrence: FR)
  Receive Date: 20131223
  Receipt Date: 20131223
  Transmission Date: 20140711
  Serious: Yes (Hospitalization)
  Sender: FDA-Public Use
  Company Number: FR-ACORDA-ACO_37510_2013

PATIENT
  Age: 58 Year
  Sex: Male

DRUGS (3)
  1. FAMPYRA [Suspect]
     Indication: GAIT DISTURBANCE
     Dosage: 10 MG, BID
     Route: 065
     Dates: start: 20130502, end: 20130601
  2. LYRICA [Concomitant]
     Indication: TRIGEMINAL NEURALGIA
     Dosage: 100 MG, BID
  3. SPASFON [Concomitant]
     Indication: ABDOMINAL PAIN

REACTIONS (3)
  - Pollakiuria [Recovered/Resolved]
  - Urinary retention [Recovered/Resolved]
  - Secondary progressive multiple sclerosis [Unknown]
